FAERS Safety Report 5541746-1 (Version None)
Quarter: 2007Q4

REPORT INFORMATION
  Report Type: 
  Country: None (occurrence: None)
  Receive Date: 20071210
  Receipt Date: 20071205
  Transmission Date: 20080405
  Serious: Yes (Life-Threatening, Hospitalization)
  Sender: FDA-Public Use
  Company Number: JP-SP-2007-04193

PATIENT
  Age: 62 Year
  Sex: Male

DRUGS (5)
  1. IMMUCYST [Suspect]
     Indication: CARCINOMA IN SITU OF BLADDER
     Route: 043
     Dates: start: 20060703, end: 20060809
  2. IMMUCYST [Suspect]
     Route: 043
     Dates: start: 20060703, end: 20060809
  3. URSODESOXYCHOLIC ACID [Concomitant]
     Dates: start: 20060501, end: 20060816
  4. AMLODIPINE BESYLATE [Concomitant]
     Dates: start: 20060501, end: 20060816
  5. GLIMEPIRIDE [Concomitant]
     Dates: start: 20060501, end: 20060816

REACTIONS (5)
  - DISSEMINATED INTRAVASCULAR COAGULATION [None]
  - HYPOTENSION [None]
  - POLLAKIURIA [None]
  - REITER'S SYNDROME [None]
  - WHITE BLOOD CELL COUNT INCREASED [None]
